FAERS Safety Report 9524881 (Version 1)
Quarter: 2013Q1

REPORT INFORMATION
  Report Type: Spontaneous
  Country: US (occurrence: None)
  Receive Date: 20130314
  Receipt Date: 20130314
  Transmission Date: 20140127
  Serious: No
  Sender: FDA-Public Use
  Company Number: 1301USA001952

PATIENT
  Age: 57 Year
  Sex: Female

DRUGS (3)
  1. VICTRELIS (BOCEPREVIR) CAPSULE [Suspect]
     Indication: HEPATITIS C
     Dosage: UNK
     Dates: start: 20130102
  2. RIBAVIRIN (RIBAVIRIN) CAPSULE [Suspect]
     Indication: HEPATITIS C
     Dosage: UNK
     Dates: start: 20121205
  3. PEGASYS (PEGINTERFERON ALFA-2A) [Suspect]
     Indication: HEPATITIS C
     Dosage: UNK
     Dates: start: 20121205

REACTIONS (4)
  - Nausea [None]
  - Thrombocytopenia [None]
  - Leukopenia [None]
  - Eructation [None]
